FAERS Safety Report 24527895 (Version 1)
Quarter: 2024Q4

REPORT INFORMATION
  Report Type: Spontaneous
  Country: US (occurrence: US)
  Receive Date: 20241021
  Receipt Date: 20241021
  Transmission Date: 20250115
  Serious: Yes (Death, Other)
  Sender: AUROBINDO
  Company Number: US-AUROBINDO-AUR-APL-2024-050340

PATIENT
  Age: 47 Year
  Sex: Male

DRUGS (20)
  1. LIDOCAINE [Suspect]
     Active Substance: LIDOCAINE
     Indication: Hyperthermia malignant
     Dosage: UNK
     Route: 065
  2. LIDOCAINE [Suspect]
     Active Substance: LIDOCAINE
     Indication: Shock
  3. LIDOCAINE [Suspect]
     Active Substance: LIDOCAINE
     Indication: Staphylococcal infection
  4. DANTROLENE [Suspect]
     Active Substance: DANTROLENE
     Indication: Hyperthermia malignant
     Dosage: 2.5 MILLIGRAM/KILOGRAM
     Route: 065
  5. DANTROLENE [Suspect]
     Active Substance: DANTROLENE
     Indication: Shock
  6. DANTROLENE [Suspect]
     Active Substance: DANTROLENE
     Indication: Staphylococcal infection
  7. VASOPRESSIN [Suspect]
     Active Substance: VASOPRESSIN
     Indication: Hyperthermia malignant
     Dosage: UNK
     Route: 065
  8. VASOPRESSIN [Suspect]
     Active Substance: VASOPRESSIN
     Indication: Shock
  9. VASOPRESSIN [Suspect]
     Active Substance: VASOPRESSIN
     Indication: Staphylococcal infection
  10. AMIODARONE HYDROCHLORIDE [Suspect]
     Active Substance: AMIODARONE HYDROCHLORIDE
     Indication: Hyperthermia malignant
     Dosage: UNK
     Route: 065
  11. AMIODARONE HYDROCHLORIDE [Suspect]
     Active Substance: AMIODARONE HYDROCHLORIDE
     Indication: Shock
  12. AMIODARONE HYDROCHLORIDE [Suspect]
     Active Substance: AMIODARONE HYDROCHLORIDE
     Indication: Staphylococcal infection
  13. NOREPINEPHRINE [Suspect]
     Active Substance: NOREPINEPHRINE\NOREPINEPHRINE BITARTRATE
     Indication: Hyperthermia malignant
     Dosage: UNK
     Route: 065
  14. NOREPINEPHRINE [Suspect]
     Active Substance: NOREPINEPHRINE\NOREPINEPHRINE BITARTRATE
     Indication: Shock
  15. NOREPINEPHRINE [Suspect]
     Active Substance: NOREPINEPHRINE\NOREPINEPHRINE BITARTRATE
     Indication: Staphylococcal infection
  16. CEFAZOLIN [Suspect]
     Active Substance: CEFAZOLIN
     Indication: Hyperthermia malignant
     Dosage: UNK
     Route: 042
  17. CEFAZOLIN [Suspect]
     Active Substance: CEFAZOLIN
     Indication: Shock
  18. CEFAZOLIN [Suspect]
     Active Substance: CEFAZOLIN
     Indication: Staphylococcal infection
  19. ROCURONIUM [Concomitant]
     Active Substance: ROCURONIUM BROMIDE
     Indication: Product used for unknown indication
     Dosage: UNK
     Route: 042
  20. MIDAZOLAM [Concomitant]
     Active Substance: MIDAZOLAM
     Indication: Product used for unknown indication
     Dosage: UNK
     Route: 042

REACTIONS (1)
  - Drug ineffective [Fatal]
